FAERS Safety Report 19382120 (Version 4)
Quarter: 2021Q3

REPORT INFORMATION
  Report Type: Report from Study
  Country: US (occurrence: US)
  Receive Date: 20210607
  Receipt Date: 20210729
  Transmission Date: 20211014
  Serious: Yes (Hospitalization, Other)
  Sender: FDA-Public Use
  Company Number: NVSC2021US118711

PATIENT
  Age: 82 Year
  Sex: Male

DRUGS (2)
  1. ENTRESTO [Suspect]
     Active Substance: SACUBITRIL\VALSARTAN
     Indication: CARDIAC FAILURE
     Dosage: UNK UNK, BID
     Route: 048
     Dates: start: 20210524
  2. ENTRESTO [Suspect]
     Active Substance: SACUBITRIL\VALSARTAN
     Dosage: UNK, QD (AT NIGHT)
     Route: 048

REACTIONS (10)
  - Inappropriate schedule of product administration [Recovered/Resolved]
  - Hypopnoea [Recovered/Resolved]
  - Hypotension [Recovered/Resolved]
  - Heart rate increased [Recovered/Resolved]
  - Blood pressure increased [Recovered/Resolved]
  - Femur fracture [Unknown]
  - Fear [Recovered/Resolved]
  - Fall [Unknown]
  - Dizziness [Recovered/Resolved]
  - Confusional state [Unknown]

NARRATIVE: CASE EVENT DATE: 20210525
